FAERS Safety Report 25691445 (Version 1)
Quarter: 2025Q3

REPORT INFORMATION
  Report Type: Spontaneous
  Country: CN (occurrence: CN)
  Receive Date: 20250818
  Receipt Date: 20250818
  Transmission Date: 20251021
  Serious: Yes (Hospitalization)
  Sender: PFIZER
  Company Number: CN-PFIZER INC-PV202500098848

PATIENT
  Age: 30 Year
  Sex: Female
  Weight: 65 kg

DRUGS (3)
  1. PACLITAXEL [Suspect]
     Active Substance: PACLITAXEL
     Indication: Breast cancer female
     Dosage: 290 MG, 1X/DAY
     Route: 041
     Dates: start: 20250710, end: 20250710
  2. CARBOPLATIN [Suspect]
     Active Substance: CARBOPLATIN
     Indication: Breast cancer female
     Dosage: 750 MG, 1X/DAY
     Route: 041
     Dates: start: 20250710, end: 20250710
  3. TORIPALIMAB [Suspect]
     Active Substance: TORIPALIMAB
     Indication: Breast cancer female
     Dosage: 240 MG, 1X/DAY
     Route: 041
     Dates: start: 20250710, end: 20250710

REACTIONS (6)
  - Rash erythematous [Recovering/Resolving]
  - Rash papular [Recovering/Resolving]
  - Pyrexia [Recovered/Resolved]
  - Sensation of foreign body [Unknown]
  - Lip swelling [Unknown]
  - Oral discomfort [Unknown]

NARRATIVE: CASE EVENT DATE: 20250701
